FAERS Safety Report 16375763 (Version 1)
Quarter: 2019Q2

REPORT INFORMATION
  Report Type: Spontaneous
  Country: HR (occurrence: HR)
  Receive Date: 20190531
  Receipt Date: 20190531
  Transmission Date: 20190711
  Serious: Yes (Hospitalization, Other)
  Sender: FDA-Public Use
  Company Number: HR-AMGEN-HRVSP2019084716

PATIENT

DRUGS (26)
  1. RITUXIMAB. [Concomitant]
     Active Substance: RITUXIMAB
     Indication: LYMPHOPROLIFERATIVE DISORDER
     Dosage: UNK
  2. IFOSFAMIDE. [Concomitant]
     Active Substance: IFOSFAMIDE
     Indication: LYMPHOPROLIFERATIVE DISORDER
     Dosage: UNK
  3. DEXAMETHASONE. [Concomitant]
     Active Substance: DEXAMETHASONE
     Indication: LYMPHOPROLIFERATIVE DISORDER
     Dosage: UNK
  4. VINORELBINE [Concomitant]
     Active Substance: VINORELBINE\VINORELBINE TARTRATE
     Indication: LYMPHOPROLIFERATIVE DISORDER
     Dosage: UNK
  5. LONQUEX [Concomitant]
     Active Substance: LIPEGFILGRASTIM
     Indication: PROPHYLAXIS
     Dosage: UNK
  6. DOXORUBICIN [Concomitant]
     Active Substance: DOXORUBICIN
     Indication: LYMPHOPROLIFERATIVE DISORDER
     Dosage: UNK
  7. GEMCITABINE [Concomitant]
     Active Substance: GEMCITABINE\GEMCITABINE HYDROCHLORIDE
     Indication: LYMPHOPROLIFERATIVE DISORDER
     Dosage: UNK
  8. ADCETRIS [Concomitant]
     Active Substance: BRENTUXIMAB VEDOTIN
     Indication: LYMPHOPROLIFERATIVE DISORDER
     Dosage: UNK
  9. ARA-C [Concomitant]
     Active Substance: CYTARABINE
     Indication: LYMPHOPROLIFERATIVE DISORDER
     Dosage: UNK
  10. PREDNISONE. [Concomitant]
     Active Substance: PREDNISONE
     Indication: LYMPHOPROLIFERATIVE DISORDER
     Dosage: UNK
  11. BENDAMUSTINE [Concomitant]
     Active Substance: BENDAMUSTINE
     Indication: LYMPHOPROLIFERATIVE DISORDER
     Dosage: UNK
  12. OXALIPLATIN. [Concomitant]
     Active Substance: OXALIPLATIN
     Indication: LYMPHOPROLIFERATIVE DISORDER
     Dosage: UNK
  13. THIOTEPA. [Concomitant]
     Active Substance: THIOTEPA
     Indication: LYMPHOPROLIFERATIVE DISORDER
     Dosage: UNK
  14. VINCRISTINE [Concomitant]
     Active Substance: VINCRISTINE
     Indication: LYMPHOPROLIFERATIVE DISORDER
     Dosage: UNK
  15. CARBOPLATIN. [Concomitant]
     Active Substance: CARBOPLATIN
     Indication: LYMPHOPROLIFERATIVE DISORDER
     Dosage: UNK
  16. ETOPOSIDE. [Concomitant]
     Active Substance: ETOPOSIDE
     Indication: LYMPHOPROLIFERATIVE DISORDER
     Dosage: UNK
  17. PROCARBAZINE [Concomitant]
     Active Substance: PROCARBAZINE
     Indication: LYMPHOPROLIFERATIVE DISORDER
     Dosage: UNK
  18. PIXANTRONE [Concomitant]
     Active Substance: PIXANTRONE
     Indication: LYMPHOPROLIFERATIVE DISORDER
     Dosage: UNK
  19. CYCLOPHOSPHAMIDE. [Concomitant]
     Active Substance: CYCLOPHOSPHAMIDE
     Indication: LYMPHOPROLIFERATIVE DISORDER
     Dosage: UNK
  20. PLATINOL [Concomitant]
     Active Substance: CISPLATIN
     Indication: LYMPHOPROLIFERATIVE DISORDER
     Dosage: UNK
  21. MESNA. [Concomitant]
     Active Substance: MESNA
     Indication: LYMPHOPROLIFERATIVE DISORDER
     Dosage: UNK
  22. METHOTREXATE. [Concomitant]
     Active Substance: METHOTREXATE
     Indication: LYMPHOPROLIFERATIVE DISORDER
     Dosage: UNK
  23. BLEOMYCIN [Concomitant]
     Active Substance: BLEOMYCIN SULFATE
     Indication: LYMPHOPROLIFERATIVE DISORDER
     Dosage: UNK
  24. NEULASTA [Suspect]
     Active Substance: PEGFILGRASTIM
     Indication: PROPHYLAXIS
     Dosage: UNK
     Route: 065
  25. SODIUM BICARBONATE. [Concomitant]
     Active Substance: SODIUM BICARBONATE
     Indication: LYMPHOPROLIFERATIVE DISORDER
     Dosage: UNK
  26. LEUCOVORIN [FOLINIC ACID] [Concomitant]
     Active Substance: LEUCOVORIN
     Indication: LYMPHOPROLIFERATIVE DISORDER
     Dosage: UNK

REACTIONS (2)
  - Febrile neutropenia [Unknown]
  - Neutropenia [Unknown]
